FAERS Safety Report 19734380 (Version 1)
Quarter: 2021Q3

REPORT INFORMATION
  Report Type: Spontaneous
  Country: US (occurrence: US)
  Receive Date: 20210824
  Receipt Date: 20210824
  Transmission Date: 20211014
  Serious: Yes (Hospitalization)
  Sender: FDA-Public Use
  Company Number: US-BEH-2021135102

PATIENT
  Age: 63 Year
  Sex: Male

DRUGS (2)
  1. PRIVIGEN [Suspect]
     Active Substance: HUMAN IMMUNOGLOBULIN G
     Indication: CHRONIC INFLAMMATORY DEMYELINATING POLYRADICULONEUROPATHY
     Dosage: 45 GRAM, DAILY FOR 2 DAYS EVERY 2 WEEKS
     Route: 042
     Dates: start: 202008
  2. PRIVIGEN [Suspect]
     Active Substance: HUMAN IMMUNOGLOBULIN G
     Dosage: 45 GRAM, DAILY FOR 2 DAYS EVERY 2 WEEKS
     Route: 042
     Dates: start: 202008

REACTIONS (2)
  - Pneumonia viral [Unknown]
  - COVID-19 [Unknown]
